FAERS Safety Report 18195148 (Version 1)
Quarter: 2020Q3

REPORT INFORMATION
  Report Type: Spontaneous
  Country: US (occurrence: US)
  Receive Date: 20200826
  Receipt Date: 20200826
  Transmission Date: 20201103
  Serious: No
  Sender: FDA-Public Use
  Company Number: US-JNJFOC-20200825454

PATIENT
  Age: 5 Decade
  Sex: Female

DRUGS (1)
  1. MENS ROGAINE [Suspect]
     Active Substance: MINOXIDIL
     Indication: ALOPECIA
     Route: 065

REACTIONS (4)
  - Seborrhoeic dermatitis [Unknown]
  - Off label use [Unknown]
  - Product use issue [Unknown]
  - Alopecia [Unknown]
